FAERS Safety Report 5717075-X (Version None)
Quarter: 2008Q2

REPORT INFORMATION
  Report Type: 
  Country: None (occurrence: None)
  Receive Date: 20080423
  Receipt Date: 20080417
  Transmission Date: 20081010
  Serious: Yes (Other)
  Sender: FDA-Public Use
  Company Number: 2008009737

PATIENT
  Age: 67 Year
  Sex: Female
  Weight: 72.5755 kg

DRUGS (1)
  1. LISTERINE VANILLA MINT (MENTHOL, METHYL SALICYLATE, EUCALYPTOL, THYMOL [Suspect]
     Indication: BREATH ODOUR
     Dosage: 20 MG TWICE ORAL
     Route: 048
     Dates: start: 20080414, end: 20080417

REACTIONS (2)
  - CAUSTIC INJURY [None]
  - SKIN EXFOLIATION [None]
